FAERS Safety Report 19243066 (Version 3)
Quarter: 2021Q2

REPORT INFORMATION
  Report Type: Spontaneous
  Country: US (occurrence: US)
  Receive Date: 20210511
  Receipt Date: 20210610
  Transmission Date: 20210717
  Serious: No
  Sender: FDA-Public Use
  Company Number: US-QUAGEN-2021QUASPO00030

PATIENT
  Age: 23 Year
  Sex: Male
  Weight: 158 kg

DRUGS (1)
  1. PROMETHAZINE HYDROCHLORIDE AND CODEINE PHOSPHATE ORAL SOLUTION [Suspect]
     Active Substance: CODEINE PHOSPHATE\PROMETHAZINE HYDROCHLORIDE
     Indication: COUGH
     Dosage: 6.25 MG AND 10 MG PER 5
     Route: 048
     Dates: start: 20210501, end: 20210502

REACTIONS (4)
  - Cough [Not Recovered/Not Resolved]
  - Drug ineffective [Unknown]
  - COVID-19 [Not Recovered/Not Resolved]
  - Condition aggravated [Not Recovered/Not Resolved]

NARRATIVE: CASE EVENT DATE: 20210502
